FAERS Safety Report 21441440 (Version 1)
Quarter: 2022Q4

REPORT INFORMATION
  Report Type: Spontaneous
  Country: US (occurrence: US)
  Receive Date: 20221011
  Receipt Date: 20221011
  Transmission Date: 20230113
  Serious: No
  Sender: FDA-Public Use
  Company Number: US-SA-2022SA408574

PATIENT
  Sex: Male
  Weight: 91 kg

DRUGS (16)
  1. CEREZYME [Suspect]
     Active Substance: IMIGLUCERASE
     Indication: Gaucher^s disease
     Dosage: 6000 IU, QOW
     Route: 042
     Dates: start: 20060918
  2. METHOXSALEN [Concomitant]
     Active Substance: METHOXSALEN
  3. SILODOSIN [Concomitant]
     Active Substance: SILODOSIN
  4. COPPER [Concomitant]
     Active Substance: COPPER
  5. CHROMIUM [Concomitant]
     Active Substance: CHROMIC CHLORIDE\CHROMIUM
  6. SELENIUM [Concomitant]
     Active Substance: SELENIUM
  7. DIPHENHYDRAMINE HYDROCHLORIDE [Concomitant]
     Active Substance: DIPHENHYDRAMINE HYDROCHLORIDE
  8. ZINC [Concomitant]
     Active Substance: ZINC
  9. VITAMIN D3 [Concomitant]
     Active Substance: CHOLECALCIFEROL
  10. VITAMIN C [Concomitant]
     Active Substance: ASCORBIC ACID
  11. VITAMIN B COMPLEX [Concomitant]
     Active Substance: CYANOCOBALAMIN\DEXPANTHENOL\NIACINAMIDE\PYRIDOXINE HYDROCHLORIDE\RIBOFLAVIN 5^-PHOSPHATE SODIUM\THIA
  12. ASCORBIC ACID\TOCOPHEROL [Concomitant]
     Active Substance: ASCORBIC ACID\TOCOPHEROL
  13. CALCIUM CITRATE [Concomitant]
     Active Substance: CALCIUM CITRATE
  14. EPINEPHRINE [Concomitant]
     Active Substance: EPINEPHRINE
  15. MAGNESIUM [Concomitant]
     Active Substance: MAGNESIUM
  16. MSM [METHYLSULFONYLMETHANE] [Concomitant]

REACTIONS (2)
  - Hypersensitivity [Unknown]
  - Eosinophil count increased [Unknown]
